FAERS Safety Report 4429837-X (Version None)
Quarter: 2004Q3

REPORT INFORMATION
  Report Type: 
  Country: None (occurrence: None)
  Receive Date: 20040818
  Receipt Date: 20040818
  Transmission Date: 20050211
  Serious: Yes (Other)
  Sender: FDA-Public Use
  Company Number: None

PATIENT
  Age: 47 Year
  Sex: Male
  Weight: 81.1939 kg

DRUGS (1)
  1. ALTOCOR 20MG ANDRX LABO [Suspect]
     Indication: BLOOD CHOLESTEROL INCREASED
     Dosage: ONE PILL AT NIGTH

REACTIONS (2)
  - ARTHRALGIA [None]
  - IMPAIRED WORK ABILITY [None]
